FAERS Safety Report 25200426 (Version 1)
Quarter: 2025Q2

REPORT INFORMATION
  Report Type: Spontaneous
  Country: US (occurrence: US)
  Receive Date: 20250415
  Receipt Date: 20250415
  Transmission Date: 20250716
  Serious: No
  Sender: BAYER
  Company Number: US-BAYER-2025A043082

PATIENT
  Sex: Female

DRUGS (1)
  1. CIPROFLOXACIN [Suspect]
     Active Substance: CIPROFLOXACIN
     Dates: start: 202406

REACTIONS (4)
  - Impaired work ability [None]
  - Tendonitis [None]
  - Tendon pain [None]
  - Incorrect route of product administration [None]
